FAERS Safety Report 23364710 (Version 1)
Quarter: 2024Q1

REPORT INFORMATION
  Report Type: Report from Study
  Country: US (occurrence: US)
  Receive Date: 20240104
  Receipt Date: 20240104
  Transmission Date: 20240410
  Serious: Yes (Hospitalization)
  Sender: FDA-Public Use
  Company Number: US-ABBVIE-5569033

PATIENT
  Sex: Female
  Weight: 70.306 kg

DRUGS (2)
  1. SKYRIZI [Suspect]
     Active Substance: RISANKIZUMAB-RZAA
     Indication: Psoriatic arthropathy
     Dosage: FORM STRENGTH: 150 MILLIGRAM
     Route: 058
     Dates: start: 20230830
  2. SKYRIZI [Suspect]
     Active Substance: RISANKIZUMAB-RZAA
     Indication: Psoriasis

REACTIONS (12)
  - Bacterial infection [Recovering/Resolving]
  - Ear congestion [Unknown]
  - Nausea [Recovering/Resolving]
  - Cough [Unknown]
  - Flatulence [Unknown]
  - Abdominal pain upper [Unknown]
  - Fatigue [Unknown]
  - Dyspnoea [Unknown]
  - Chest discomfort [Unknown]
  - Unevaluable event [Unknown]
  - Pyrexia [Unknown]
  - Rhinorrhoea [Unknown]

NARRATIVE: CASE EVENT DATE: 20230101
